FAERS Safety Report 10495767 (Version 1)
Quarter: 2014Q3

REPORT INFORMATION
  Report Type: Spontaneous
  Country: US (occurrence: None)
  Receive Date: 20140815
  Receipt Date: 20140815
  Transmission Date: 20150326
  Serious: Yes (Other)
  Sender: FDA-Public Use
  Company Number: ADR-2013-01934

PATIENT
  Sex: Female

DRUGS (2)
  1. FENTANYL INTRATHECAL 2000 MCG/ML [Suspect]
     Active Substance: FENTANYL
     Indication: BACK PAIN
  2. BACLOFEN INTRATHECAL 200 MCG/ML [Suspect]
     Active Substance: BACLOFEN
     Indication: BACK PAIN

REACTIONS (1)
  - Feeling abnormal [None]
